FAERS Safety Report 14714170 (Version 1)
Quarter: 2018Q2

REPORT INFORMATION
  Report Type: Spontaneous
  Country: US (occurrence: US)
  Receive Date: 20180404
  Receipt Date: 20180404
  Transmission Date: 20180711
  Serious: No
  Sender: FDA-Public Use
  Company Number: US-ARBOR PHARMACEUTICALS, LLC-US-2017ARB000312

PATIENT
  Sex: Male

DRUGS (3)
  1. SKLICE [Suspect]
     Active Substance: IVERMECTIN
     Dosage: UNK
     Route: 061
     Dates: start: 20170112, end: 20170112
  2. SKLICE [Suspect]
     Active Substance: IVERMECTIN
     Indication: LICE INFESTATION
     Dosage: UNK
     Route: 061
     Dates: start: 20161222, end: 20161222
  3. SKLICE [Suspect]
     Active Substance: IVERMECTIN
     Dosage: UNK
     Route: 061
     Dates: start: 20170222, end: 20170222

REACTIONS (1)
  - Drug ineffective [Unknown]
